FAERS Safety Report 7006416-1 (Version None)
Quarter: 2010Q3

REPORT INFORMATION
  Report Type: 
  Country: None (occurrence: None)
  Receive Date: 20100921
  Receipt Date: 20100914
  Transmission Date: 20110219
  Serious: Yes (Hospitalization)
  Sender: FDA-Public Use
  Company Number: GB-AMGEN-QUU428925

PATIENT
  Sex: Female

DRUGS (11)
  1. NEULASTA [Suspect]
     Indication: CHEMOTHERAPY
     Route: 058
     Dates: start: 20100708, end: 20100708
  2. CISPLATIN [Concomitant]
  3. VINORELBINE [Concomitant]
  4. ASPIRIN [Concomitant]
     Route: 048
     Dates: start: 20100101
  5. BENDROFLUAZIDE [Concomitant]
     Route: 048
     Dates: start: 20100101
  6. UNKNOWN DRUG[INGREDIENT UNKNOWN] [Concomitant]
     Route: 048
     Dates: start: 20100101
  7. SIMVASTATIN [Concomitant]
     Route: 048
     Dates: start: 20100101
  8. DILTIAZEM [Concomitant]
     Route: 048
     Dates: start: 20100101
  9. ACETAMINOPHEN [Concomitant]
  10. FERROUS FUMARATE [Concomitant]
  11. DOMPERIDONE [Concomitant]

REACTIONS (2)
  - DIARRHOEA [None]
  - NEUTROPENIC SEPSIS [None]
